FAERS Safety Report 17307157 (Version 6)
Quarter: 2020Q1

REPORT INFORMATION
  Report Type: Report from Study
  Country: None (occurrence: IL)
  Receive Date: 20200123
  Receipt Date: 20200327
  Transmission Date: 20200409
  Serious: Yes (Hospitalization)
  Sender: FDA-Public Use
  Company Number: IL-ABBVIE-19K-082-3203594-00

PATIENT
  Age: 80 Year
  Sex: Male

DRUGS (2)
  1. DUODOPA [Suspect]
     Active Substance: CARBIDOPA\LEVODOPA
     Dosage: CURRENT: MORNING DOSE 13ML, CONTINUOUS DOSE 4.2ML/HOUR, EXTRA DOSE 1.5ML
     Route: 050
  2. DUODOPA [Suspect]
     Active Substance: CARBIDOPA\LEVODOPA
     Indication: PARKINSON^S DISEASE
     Dosage: CURRENT: MORNING DOSE 13ML, CONTINUOUS DOSE 4.2ML/HOUR, EXTRA DOSE 1.5ML
     Route: 050
     Dates: start: 20191110

REACTIONS (9)
  - Obstruction [Unknown]
  - Device alarm issue [Unknown]
  - Medical device site fistula [Unknown]
  - Abdominal pain upper [Unknown]
  - Incorrect route of product administration [Recovered/Resolved]
  - Device issue [Unknown]
  - Bezoar [Unknown]
  - Unintentional medical device removal [Recovered/Resolved]
  - Incorrect route of product administration [Recovered/Resolved]

NARRATIVE: CASE EVENT DATE: 2019
